FAERS Safety Report 4445481-2 (Version None)
Quarter: 2004Q2

REPORT INFORMATION
  Report Type: 
  Country: None (occurrence: None)
  Receive Date: 20040525
  Receipt Date: 20030501
  Transmission Date: 20050107
  Serious: Yes (Hospitalization)
  Sender: FDA-Public Use
  Company Number: 221894

PATIENT
  Age: 10 Year
  Sex: Male
  Weight: 44 kg

DRUGS (2)
  1. NOVOSEVEN [Suspect]
     Indication: HAEMOPHILIA
     Dosage: 130 UG/KG, Q 2 TO 3 H, INTRAVENOUS
     Route: 042
     Dates: start: 20021105, end: 20021109
  2. MORPHINE [Concomitant]

REACTIONS (1)
  - THERAPEUTIC RESPONSE DECREASED [None]
